FAERS Safety Report 5656067-6 (Version None)
Quarter: 2008Q1

REPORT INFORMATION
  Report Type: 
  Country: None (occurrence: None)
  Receive Date: 20080307
  Receipt Date: 20080228
  Transmission Date: 20080703
  Serious: Yes (Other)
  Sender: FDA-Public Use
  Company Number: BR-PFIZER INC-2008019906

PATIENT
  Sex: Female
  Weight: 64 kg

DRUGS (3)
  1. LIPITOR [Suspect]
     Indication: BLOOD CHOLESTEROL INCREASED
     Dosage: DAILY DOSE:20MG-FREQ:DAILY
     Route: 048
  2. OPHTHALMOLOGICALS [Concomitant]
     Route: 047
  3. SALT SOLUTIONS [Concomitant]

REACTIONS (1)
  - ACROCHORDON [None]
